FAERS Safety Report 25741889 (Version 1)
Quarter: 2025Q3

REPORT INFORMATION
  Report Type: Spontaneous
  Country: US (occurrence: US)
  Receive Date: 20250829
  Receipt Date: 20250829
  Transmission Date: 20251021
  Serious: No
  Sender: DR REDDYS
  Company Number: US-DRL-USA-USA/2025/08/012788

PATIENT
  Age: 61 Year
  Sex: Female

DRUGS (5)
  1. DOXYCYCLINE [Suspect]
     Active Substance: DOXYCYCLINE
     Indication: Pemphigoid
  2. DOXYCYCLINE [Suspect]
     Active Substance: DOXYCYCLINE
  3. DOXYCYCLINE [Suspect]
     Active Substance: DOXYCYCLINE
  4. PREDNISONE [Concomitant]
     Active Substance: PREDNISONE
     Indication: Pemphigoid
  5. CLOBETASOL [Concomitant]
     Active Substance: CLOBETASOL
     Indication: Pemphigoid
     Dosage: 0.05% OINTMENT
     Route: 061

REACTIONS (1)
  - Drug ineffective for unapproved indication [Unknown]
